FAERS Safety Report 13285030 (Version 1)
Quarter: 2017Q1

REPORT INFORMATION
  Report Type: Spontaneous
  Country: US (occurrence: US)
  Receive Date: 20170301
  Receipt Date: 20170301
  Transmission Date: 20170428
  Serious: No
  Sender: FDA-Public Use
  Company Number: None

PATIENT
  Age: 54 Year
  Sex: Female

DRUGS (3)
  1. ALEVE PM [Concomitant]
     Active Substance: DIPHENHYDRAMINE HYDROCHLORIDE\NAPROXEN SODIUM
  2. SYNTHROID [Concomitant]
     Active Substance: LEVOTHYROXINE SODIUM
  3. ASSURED MENTHOL RELIEF STICK [Suspect]
     Active Substance: MENTHOL
     Indication: NECK PAIN
     Dosage: 1 APPLICATION AS NEEDED TOPICAL
     Route: 061
     Dates: start: 20170225, end: 20170226

REACTIONS (4)
  - Application site erythema [None]
  - Application site exfoliation [None]
  - Application site pruritus [None]
  - Application site burn [None]

NARRATIVE: CASE EVENT DATE: 20170225
